FAERS Safety Report 20737228 (Version 1)
Quarter: 2022Q2

REPORT INFORMATION
  Report Type: Spontaneous
  Country: CA (occurrence: CA)
  Receive Date: 20220421
  Receipt Date: 20220421
  Transmission Date: 20220721
  Serious: Yes (Other)
  Sender: FDA-Public Use
  Company Number: CA-TEVA-2022-CA-2027596

PATIENT
  Sex: Female
  Weight: 91 kg

DRUGS (1)
  1. PREDNISONE [Suspect]
     Active Substance: PREDNISONE
     Route: 065

REACTIONS (4)
  - Type 1 diabetes mellitus [Unknown]
  - Pulmonary sarcoidosis [Unknown]
  - Splenomegaly [Unknown]
  - Lymphadenopathy [Unknown]
